FAERS Safety Report 17283389 (Version 3)
Quarter: 2020Q2

REPORT INFORMATION
  Report Type: Spontaneous
  Country: US (occurrence: US)
  Receive Date: 20200117
  Receipt Date: 20200413
  Transmission Date: 20200713
  Serious: No
  Sender: FDA-Public Use
  Company Number: US-PFIZER INC-2020020682

PATIENT
  Age: 64 Year
  Sex: Male
  Weight: 77 kg

DRUGS (5)
  1. BYSTOLIC [Suspect]
     Active Substance: NEBIVOLOL HYDROCHLORIDE
     Indication: HYPERTENSION
     Dosage: 2 MG, UNK
  2. BYSTOLIC [Suspect]
     Active Substance: NEBIVOLOL HYDROCHLORIDE
     Dosage: 5 MG, 1X/DAY
     Route: 048
  3. INLYTA [Suspect]
     Active Substance: AXITINIB
     Indication: RENAL CELL CARCINOMA
     Dosage: 5 MG, 2X/DAY (WITH FOOD OR GLASS OF WATER, EVERY 12 HOURS)
     Route: 048
  4. KEYTRUDA [Suspect]
     Active Substance: PEMBROLIZUMAB
     Indication: RENAL CELL CARCINOMA
     Dosage: UNK [IV EVERY 3 WEEKS IN THE OFFICE]
     Route: 042
  5. TELMISARTAN. [Suspect]
     Active Substance: TELMISARTAN
     Indication: HYPERTENSION
     Dosage: UNK, 1X/DAY [80-12.5 MG DRINK WITH GLASS OF WATER ONCE A DAY]
     Dates: start: 2017

REACTIONS (16)
  - Hypertension [Not Recovered/Not Resolved]
  - Weight increased [Not Recovered/Not Resolved]
  - Visual acuity reduced [Unknown]
  - Diarrhoea [Recovering/Resolving]
  - Dysphonia [Unknown]
  - Feeling abnormal [Unknown]
  - Abdominal pain upper [Unknown]
  - Pain [Unknown]
  - Myalgia [Unknown]
  - Weight decreased [Unknown]
  - Abdominal discomfort [Not Recovered/Not Resolved]
  - Feeling hot [Not Recovered/Not Resolved]
  - Pain in extremity [Unknown]
  - Cough [Recovering/Resolving]
  - Neoplasm progression [Unknown]
  - Muscle spasms [Unknown]
